FAERS Safety Report 6679082-2 (Version None)
Quarter: 2010Q2

REPORT INFORMATION
  Report Type: 
  Country: None (occurrence: None)
  Receive Date: 20100402
  Receipt Date: 20031023
  Transmission Date: 20101027
  Serious: Yes (Other)
  Sender: FDA-Public Use
  Company Number: 23100341

PATIENT
  Age: 54 Year
  Sex: Male
  Weight: 94.5 kg

DRUGS (8)
  1. ARGATROBAN [Suspect]
     Indication: CONTINUOUS HAEMODIAFILTRATION
     Dosage: INTRAVENOUS
     Route: 042
     Dates: start: 20031020, end: 20031023
  2. ARGATROBAN [Suspect]
     Indication: HEPARIN-INDUCED THROMBOCYTOPENIA
     Dosage: INTRAVENOUS
     Route: 042
     Dates: start: 20031020, end: 20031023
  3. ACTIVASE [Concomitant]
  4. LACTULOSE [Concomitant]
  5. LEVOFLOXACIN [Concomitant]
  6. RABEPRAZOLE SODIUM [Concomitant]
  7. SALMETEROL (SALMETEROL) [Concomitant]
  8. ALBUTEROL [Concomitant]

REACTIONS (2)
  - EPISTAXIS [None]
  - INJECTION SITE HAEMORRHAGE [None]
